FAERS Safety Report 7103667-2 (Version None)
Quarter: 2010Q4

REPORT INFORMATION
  Report Type: 
  Country: None (occurrence: None)
  Receive Date: 20101115
  Receipt Date: 20080319
  Transmission Date: 20110411
  Serious: No
  Sender: FDA-Public Use
  Company Number: US-KINGPHARMUSA00001-K200800340

PATIENT
  Age: 79 Year
  Sex: Male
  Weight: 72.562 kg

DRUGS (1)
  1. ALTACE [Suspect]

REACTIONS (2)
  - COUGH [None]
  - HYPERSENSITIVITY [None]
